FAERS Safety Report 7234046-5 (Version None)
Quarter: 2010Q4

REPORT INFORMATION
  Report Type: 
  Country: None (occurrence: None)
  Receive Date: 20101130
  Receipt Date: 20071112
  Transmission Date: 20110411
  Serious: Yes (Hospitalization)
  Sender: FDA-Public Use
  Company Number: 2007-167545-NL

PATIENT
  Age: 25 Year
  Sex: Female
  Weight: 63.5 kg

DRUGS (3)
  1. NUVARING [Suspect]
     Indication: CONTRACEPTION
     Dosage: VAG
     Route: 067
     Dates: start: 20070829, end: 20071107
  2. NAPROXEN [Concomitant]
  3. TORADEL [Concomitant]

REACTIONS (6)
  - DEPRESSION [None]
  - GASTROENTERITIS [None]
  - HEADACHE [None]
  - INSOMNIA [None]
  - PLEURITIC PAIN [None]
  - PULMONARY EMBOLISM [None]
